FAERS Safety Report 14034562 (Version 1)
Quarter: 2017Q4

REPORT INFORMATION
  Report Type: Spontaneous
  Country: US (occurrence: US)
  Receive Date: 20171003
  Receipt Date: 20171003
  Transmission Date: 20180321
  Serious: No
  Sender: FDA-Public Use
  Company Number: US-PFIZER INC-2017423964

PATIENT
  Sex: Female

DRUGS (2)
  1. TIKOSYN [Suspect]
     Active Substance: DOFETILIDE
     Dosage: UNK
  2. MAGNESIUM [Concomitant]
     Active Substance: MAGNESIUM
     Dosage: 250 MG, UNK

REACTIONS (6)
  - Hypoaesthesia [Unknown]
  - Asthenia [Unknown]
  - Dizziness [Unknown]
  - Swelling [Unknown]
  - Headache [Unknown]
  - Eye pain [Unknown]
